FAERS Safety Report 5215722-2 (Version None)
Quarter: 2007Q1

REPORT INFORMATION
  Report Type: 
  Country: None (occurrence: None)
  Receive Date: 20070123
  Receipt Date: 20070117
  Transmission Date: 20070707
  Serious: Yes (Hospitalization)
  Sender: FDA-Public Use
  Company Number: FR-AVENTIS-200710216FR

PATIENT
  Age: 51 Year
  Sex: Female
  Weight: 75 kg

DRUGS (7)
  1. GLIMEPIRIDE [Suspect]
     Route: 048
  2. LEVOTHYROXINE SODIUM [Suspect]
     Indication: DRUG USE FOR UNKNOWN INDICATION
     Route: 048
     Dates: start: 20020101
  3. TAHOR [Suspect]
     Route: 048
  4. VALSARTAN AND HYDROCHLOROTHIAZIDE [Suspect]
     Route: 048
  5. LOZOL [Suspect]
     Route: 048
  6. LEVONORGESTREL AND ETHINYL ESTRADIOL [Suspect]
     Indication: DRUG USE FOR UNKNOWN INDICATION
     Route: 048
     Dates: end: 20050521
  7. LANTUS [Concomitant]
     Route: 058

REACTIONS (1)
  - CEREBROVASCULAR ACCIDENT [None]
